FAERS Safety Report 23548853 (Version 1)
Quarter: 2024Q1

REPORT INFORMATION
  Report Type: Report from Study
  Country: CA (occurrence: CA)
  Receive Date: 20240221
  Receipt Date: 20240221
  Transmission Date: 20240410
  Serious: Yes (Hospitalization, Other)
  Sender: FDA-Public Use
  Company Number: CA-JNJFOC-20230712990

PATIENT
  Age: 58 Year
  Sex: Male

DRUGS (8)
  1. REMICADE [Suspect]
     Active Substance: INFLIXIMAB
     Indication: Crohn^s disease
     Dosage: ON 10/MAY/2023 THE PATIENT RECEIVED DOSE
     Route: 041
  2. REMICADE [Suspect]
     Active Substance: INFLIXIMAB
     Dosage: ON 06/JUL/2023 PATIENT RECEIVED THE DOSE
     Route: 041
  3. REMICADE [Suspect]
     Active Substance: INFLIXIMAB
     Route: 041
     Dates: start: 20170928
  4. REMICADE [Suspect]
     Active Substance: INFLIXIMAB
     Route: 041
     Dates: start: 20170928
  5. PREVACID [Concomitant]
     Active Substance: LANSOPRAZOLE
     Indication: Product used for unknown indication
     Route: 065
  6. IRON [Concomitant]
     Active Substance: IRON
     Indication: Product used for unknown indication
     Route: 041
  7. VITAMIN B12 [Concomitant]
     Active Substance: CYANOCOBALAMIN
     Indication: Product used for unknown indication
     Route: 030
  8. VITAMIN K [Concomitant]
     Active Substance: PHYTONADIONE
     Indication: Product used for unknown indication
     Route: 065

REACTIONS (14)
  - Blood magnesium decreased [Recovering/Resolving]
  - Blood calcium decreased [Recovering/Resolving]
  - Blood potassium decreased [Recovering/Resolving]
  - Intestinal resection [Unknown]
  - Weight decreased [Unknown]
  - Malaise [Unknown]
  - Stress [Unknown]
  - Intestinal polyp [Unknown]
  - Scab [Unknown]
  - Nodule [Not Recovered/Not Resolved]
  - Paraesthesia [Unknown]
  - Feeling cold [Unknown]
  - Fatigue [Unknown]
  - Pruritus [Unknown]

NARRATIVE: CASE EVENT DATE: 20230101
